FAERS Safety Report 15955477 (Version 1)
Quarter: 2019Q1

REPORT INFORMATION
  Report Type: Spontaneous
  Country: US (occurrence: US)
  Receive Date: 20190213
  Receipt Date: 20190213
  Transmission Date: 20190417
  Serious: Yes (Other)
  Sender: FDA-Public Use
  Company Number: US-DRREDDYS-USA/USA/19/0107667

PATIENT
  Sex: Female

DRUGS (1)
  1. LEVOFLOXACIN TABLETS 750 MG [Suspect]
     Active Substance: LEVOFLOXACIN
     Indication: PRODUCT USED FOR UNKNOWN INDICATION
     Dosage: HAS TAKEN ABOUT 2 DOSES SO FAR
     Route: 048
     Dates: start: 20190206

REACTIONS (1)
  - Vaginal haemorrhage [Not Recovered/Not Resolved]
